FAERS Safety Report 4758099-9 (Version None)
Quarter: 2005Q3

REPORT INFORMATION
  Report Type: 
  Country: None (occurrence: None)
  Receive Date: 20050831
  Receipt Date: 20050822
  Transmission Date: 20060218
  Serious: Yes (Disabling)
  Sender: FDA-Public Use
  Company Number: GB-MERCK-0508GBR00123

PATIENT
  Age: 78 Year
  Sex: Male

DRUGS (7)
  1. ZETIA [Suspect]
     Indication: HYPERCHOLESTEROLAEMIA
     Route: 048
     Dates: start: 20041221
  2. ZETIA [Suspect]
     Route: 048
     Dates: end: 20050712
  3. ASPIRIN [Concomitant]
     Indication: PERIPHERAL VASCULAR DISORDER
     Route: 048
     Dates: start: 20010101
  4. BENDROFLUMETHIAZIDE [Concomitant]
     Indication: HYPERTENSION
     Route: 048
     Dates: start: 20000101
  5. FELODIPINE [Concomitant]
     Indication: HYPERTENSION
     Route: 048
     Dates: start: 20000101
  6. DICLOFENAC [Concomitant]
     Indication: SPONDYLITIS
     Route: 048
     Dates: start: 20010101
  7. TRAMADOL HYDROCHLORIDE [Concomitant]
     Indication: SPONDYLITIS
     Route: 048

REACTIONS (1)
  - DYSPNOEA [None]
